FAERS Safety Report 24937060 (Version 1)
Quarter: 2025Q1

REPORT INFORMATION
  Report Type: Spontaneous
  Country: US (occurrence: None)
  Receive Date: 20250205
  Receipt Date: 20250205
  Transmission Date: 20250408
  Serious: Yes (Disabling)
  Sender: FDA-CTU
  Company Number: None

PATIENT
  Age: 62 Year
  Sex: Female
  Weight: 58.05 kg

DRUGS (4)
  1. PRALUENT [Suspect]
     Active Substance: ALIROCUMAB
     Indication: Hypercholesterolaemia
     Route: 058
     Dates: start: 20191002, end: 20250203
  2. METOPROLOL TARTRATE [Concomitant]
     Active Substance: METOPROLOL TARTRATE
  3. PRALUENT [Concomitant]
     Active Substance: ALIROCUMAB
  4. VITAMINS [Concomitant]
     Active Substance: VITAMINS

REACTIONS (4)
  - Spinal pain [None]
  - Muscle spasms [None]
  - Inflammation [None]
  - Eye pain [None]

NARRATIVE: CASE EVENT DATE: 20241102
